FAERS Safety Report 23387192 (Version 2)
Quarter: 2024Q1

REPORT INFORMATION
  Report Type: Report from Study
  Country: CO (occurrence: None)
  Receive Date: 20240110
  Receipt Date: 20240119
  Transmission Date: 20240410
  Serious: Yes (Death, Hospitalization, Other)
  Sender: FDA-Public Use
  Company Number: 2024A004094

PATIENT
  Age: 1055 Month
  Sex: Female

DRUGS (1)
  1. CALQUENCE [Suspect]
     Active Substance: ACALABRUTINIB
     Indication: Chronic lymphocytic leukaemia
     Route: 048
     Dates: start: 20230510, end: 202311

REACTIONS (6)
  - Oedema [Fatal]
  - Decreased appetite [Fatal]
  - Fatigue [Fatal]
  - Asthenia [Fatal]
  - Malignant neoplasm progression [Fatal]
  - Product prescribing issue [Unknown]

NARRATIVE: CASE EVENT DATE: 20231101
